FAERS Safety Report 24067255 (Version 1)
Quarter: 2024Q3

REPORT INFORMATION
  Report Type: Spontaneous
  Country: GB (occurrence: GB)
  Receive Date: 20240709
  Receipt Date: 20240709
  Transmission Date: 20241016
  Serious: Yes (Hospitalization)
  Sender: ROCHE
  Company Number: None

PATIENT
  Age: 52 Year
  Sex: Male
  Weight: 70 kg

DRUGS (1)
  1. ALTEPLASE [Suspect]
     Active Substance: ALTEPLASE
     Indication: Product used for unknown indication
     Route: 034
     Dates: start: 20240626, end: 20240629

REACTIONS (3)
  - Depressed level of consciousness [Recovering/Resolving]
  - Medication error [Unknown]
  - Seizure [Unknown]

NARRATIVE: CASE EVENT DATE: 20240629
